FAERS Safety Report 25284837 (Version 1)
Quarter: 2025Q2

REPORT INFORMATION
  Report Type: Spontaneous
  Country: US (occurrence: US)
  Receive Date: 20250508
  Receipt Date: 20250508
  Transmission Date: 20250717
  Serious: Yes (Other)
  Sender: SANOFI AVENTIS
  Company Number: US-DialogSolutions-SAAVPROD-PI766522-C1

PATIENT
  Age: 20 Year
  Sex: Male

DRUGS (3)
  1. PLERIXAFOR [Suspect]
     Active Substance: PLERIXAFOR
     Indication: Haematopoietic stem cell mobilisation
  2. PLERIXAFOR [Suspect]
     Active Substance: PLERIXAFOR
     Indication: Sickle cell disease
  3. HYDROXYUREA [Concomitant]
     Active Substance: HYDROXYUREA
     Indication: Sickle cell disease

REACTIONS (3)
  - Osteonecrosis [Unknown]
  - Retinopathy [Unknown]
  - Vascular occlusion [Unknown]
